FAERS Safety Report 6295151-3 (Version None)
Quarter: 2009Q3

REPORT INFORMATION
  Report Type: 
  Country: None (occurrence: None)
  Receive Date: 20090803
  Receipt Date: 20080521
  Transmission Date: 20100115
  Serious: Yes (Hospitalization)
  Sender: FDA-Public Use
  Company Number: US-BRISTOL-MYERS SQUIBB COMPANY-13490909

PATIENT
  Age: 75 Year
  Sex: Male
  Weight: 68 kg

DRUGS (7)
  1. CETUXIMAB [Suspect]
     Indication: NON-SMALL CELL LUNG CANCER
     Dosage: FIRST INFUSION WAS ON 11MAY2006 250 MG/M2:13TH INF
     Route: 042
     Dates: start: 20060511, end: 20060804
  2. DOCETAXEL [Suspect]
     Indication: NON-SMALL CELL LUNG CANCER
     Dosage: INITIAL INFUSION 131 MG THEN REDUCED TO 94 MG
     Route: 042
     Dates: start: 20060511, end: 20060804
  3. PROCARDIA XL [Concomitant]
     Route: 065
  4. NEXIUM [Concomitant]
     Route: 065
  5. ATIVAN [Concomitant]
     Route: 065
  6. MAGNESIUM [Concomitant]
     Dosage: SLO MAGNESIUM
     Route: 065
  7. ROCEPHIN [Concomitant]
     Route: 065
     Dates: start: 20060811, end: 20060814

REACTIONS (3)
  - FAILURE TO THRIVE [None]
  - HYPOTENSION [None]
  - OEDEMA [None]
